FAERS Safety Report 4918240-1 (Version None)
Quarter: 2006Q1

REPORT INFORMATION
  Report Type: 
  Country: None (occurrence: None)
  Receive Date: 20060215
  Receipt Date: 20060206
  Transmission Date: 20060701
  Serious: Yes (Hospitalization)
  Sender: FDA-Public Use
  Company Number: 200514848BCC

PATIENT
  Age: 76 Year
  Sex: Male
  Weight: 79.3795 kg

DRUGS (9)
  1. ALEVE (CAPLET) [Suspect]
     Indication: ARTHRALGIA
     Dosage: SEE IMAGE
     Route: 048
     Dates: start: 20051101, end: 20051201
  2. ALEVE (CAPLET) [Suspect]
     Indication: ARTHRALGIA
     Dosage: SEE IMAGE
     Route: 048
     Dates: start: 20041201
  3. ALEVE (CAPLET) [Suspect]
     Indication: ARTHRALGIA
     Dosage: SEE IMAGE
     Route: 048
     Dates: start: 20051101
  4. ST. JOSEPH'S ASPIRIN [Concomitant]
  5. WARFARIN [Concomitant]
  6. METOPROLOL [Concomitant]
  7. HYDROCHLOROTHIAZIDE [Concomitant]
  8. XALATAN [Concomitant]
  9. PREVACID [Concomitant]

REACTIONS (6)
  - COAGULOPATHY [None]
  - GASTRIC MUCOSAL LESION [None]
  - HAEMATEMESIS [None]
  - HAEMATOCHEZIA [None]
  - INADEQUATE ANALGESIA [None]
  - RECTAL HAEMORRHAGE [None]
